FAERS Safety Report 6375617-8 (Version None)
Quarter: 2009Q3

REPORT INFORMATION
  Report Type: 
  Country: None (occurrence: None)
  Receive Date: 20090924
  Receipt Date: 20090916
  Transmission Date: 20100115
  Serious: Yes (Hospitalization)
  Sender: FDA-Public Use
  Company Number: CA-AVENTIS-200920644GDDC

PATIENT
  Age: 53 Year
  Sex: Male

DRUGS (3)
  1. DOCETAXEL [Suspect]
     Route: 042
     Dates: start: 20090730, end: 20090730
  2. UNKNOWN DRUG [Suspect]
     Route: 042
     Dates: start: 20090730, end: 20090730
  3. PREDNISONE TAB [Suspect]
     Route: 048
     Dates: start: 20090730

REACTIONS (1)
  - HYPERGLYCAEMIA [None]
